FAERS Safety Report 8937170 (Version 1)
Quarter: 2012Q4

REPORT INFORMATION
  Report Type: Spontaneous
  Country: US (occurrence: None)
  Receive Date: 20121128
  Receipt Date: 20121128
  Transmission Date: 20130627
  Serious: Yes (Other)
  Sender: FDA-Public Use
  Company Number: None

PATIENT
  Age: 74 Year
  Sex: Female
  Weight: 50.8 kg

DRUGS (2)
  1. DONEPEZIL [Suspect]
     Indication: DEMENTIA
     Dosage: 5 mg  (1/2 tablet) (1) bed time mouth
     Route: 048
     Dates: start: 20121024
  2. DONEPEZIL [Suspect]
     Indication: DEMENTIA
     Dates: start: 20121025

REACTIONS (10)
  - Nausea [None]
  - Diarrhoea [None]
  - Decreased appetite [None]
  - Sleep disorder [None]
  - Vomiting [None]
  - Pruritus [None]
  - Tremor [None]
  - Dizziness [None]
  - Yellow skin [None]
  - Pallor [None]
